FAERS Safety Report 4505017-4 (Version None)
Quarter: 2004Q4

REPORT INFORMATION
  Report Type: 
  Country: None (occurrence: None)
  Receive Date: 20041015
  Receipt Date: 20031220
  Transmission Date: 20050328
  Serious: Yes (Death, Other)
  Sender: FDA-Public Use
  Company Number: 2003113288

PATIENT
  Age: 76 Year
  Sex: Male
  Weight: 79.3795 kg

DRUGS (14)
  1. NEURONTIN [Suspect]
     Indication: SCIATIC NERVE NEUROPATHY
     Dosage: 300 MG (DAILY), ORAL
     Route: 048
     Dates: start: 20030919
  2. TRIMIPRAMINE MALEATE [Concomitant]
  3. ASPIRIN [Concomitant]
  4. ALL OTHER THERAPEUTIC PRODUCTS (ALL OTHER THERAPEUTIC PRODUCTS) [Concomitant]
  5. FUROSEMIDE [Concomitant]
  6. CARVEDILOL [Concomitant]
  7. CAPTOPRIL [Concomitant]
  8. ALL OTHER THERAPEUTIC PRODUCTS (ALL OTHER THERAPEUTIC PRODUCTS) [Concomitant]
  9. IBUPROFEN [Concomitant]
  10. ACETAMINOPHEN [Concomitant]
  11. ARTHROTEC [Concomitant]
  12. DEXTROPROPOXYPHENE HYDROCHLORIDE (DEXTROPROPOXYPHENE HYDROCHLORIDE) [Concomitant]
  13. THERAGRAN (VITAMINS NOS) [Concomitant]
  14. THIAMINE HCL [Concomitant]

REACTIONS (10)
  - BUTTOCK PAIN [None]
  - DIZZINESS [None]
  - EJACULATION DISORDER [None]
  - HYPOAESTHESIA [None]
  - INTENTIONAL OVERDOSE [None]
  - MEDICATION ERROR [None]
  - MYOCARDIAL INFARCTION [None]
  - SOMNOLENCE [None]
  - URINARY INCONTINENCE [None]
  - VISUAL DISTURBANCE [None]
